FAERS Safety Report 7654002-2 (Version None)
Quarter: 2011Q3

REPORT INFORMATION
  Report Type: 
  Country: None (occurrence: None)
  Receive Date: 20110803
  Receipt Date: 20110721
  Transmission Date: 20111222
  Serious: No
  Sender: FDA-Public Use
  Company Number: PHHY2010ZA68869

PATIENT
  Sex: Female
  Weight: 71.5 kg

DRUGS (4)
  1. TASIGNA [Suspect]
     Dosage: 400 MG, QD
     Dates: start: 20091117, end: 20101013
  2. TASIGNA [Suspect]
     Dosage: 400 MG, QD
     Route: 048
     Dates: start: 20110505
  3. DEPO-PROVERA [Concomitant]
  4. TASIGNA [Suspect]
     Dosage: 400 MG, BID
     Route: 048
     Dates: start: 20090615, end: 20091116

REACTIONS (2)
  - NORMAL NEWBORN [None]
  - MATERNAL EXPOSURE DURING PREGNANCY [None]
